FAERS Safety Report 16955032 (Version 1)
Quarter: 2019Q4

REPORT INFORMATION
  Report Type: Report from Study
  Country: IT (occurrence: IT)
  Receive Date: 20191024
  Receipt Date: 20191024
  Transmission Date: 20200122
  Serious: Yes (Hospitalization)
  Sender: FDA-Public Use
  Company Number: IT-TEVA-2019-IT-1125875

PATIENT
  Age: 88 Year
  Sex: Male
  Weight: 70 kg

DRUGS (12)
  1. FUROSEMIDE. [Concomitant]
     Active Substance: FUROSEMIDE
     Dosage: 75 MG
     Route: 048
  2. RELVAR ELLIPTA 92 MICROGRAMS/22 MICROGRAMS INHALATION POWDER, PRE-DISP [Concomitant]
     Dosage: 92 MICROGRAMS/22 MICROGRAMS
  3. RAMIPRIL. [Concomitant]
     Active Substance: RAMIPRIL
     Dosage: 10 MG
     Route: 048
  4. ALLOPURINOL. [Concomitant]
     Active Substance: ALLOPURINOL
     Dosage: 150 MG
     Route: 048
  5. TAVOR 2,5 MG COMPRESSE [Concomitant]
     Active Substance: LORAZEPAM
     Dosage: 1 DF
     Route: 048
  6. NITRODERM TTS 5 MG/DIE CEROTTO TRANSDERMICO [Concomitant]
     Dosage: 5 MG / DIE; 1 DF
     Route: 062
  7. APIXABAN [Suspect]
     Active Substance: APIXABAN
     Indication: PROPHYLAXIS
     Dosage: 5 MG
     Route: 048
     Dates: start: 20190301, end: 20190825
  8. ESOMEPRAZOLE SODIUM. [Concomitant]
     Active Substance: ESOMEPRAZOLE SODIUM
     Dosage: 80 MG
     Route: 048
  9. LENTO-KALIUM [Concomitant]
     Active Substance: POTASSIUM CHLORIDE
     Dosage: 2 DF
     Route: 048
  10. AMLODIPINE [Concomitant]
     Active Substance: AMLODIPINE BESYLATE
     Dosage: 10 MG
     Route: 048
  11. AMIODARONE [Concomitant]
     Active Substance: AMIODARONE
     Dosage: 200 MG
     Route: 048
  12. CLOPIDOGREL [Suspect]
     Active Substance: CLOPIDOGREL BISULFATE
     Indication: PROPHYLAXIS
     Dosage: 75 MG
     Route: 048
     Dates: start: 20150101, end: 20190825

REACTIONS (3)
  - Medication error [Recovering/Resolving]
  - Anaemia [Recovering/Resolving]
  - Gastritis haemorrhagic [Recovering/Resolving]

NARRATIVE: CASE EVENT DATE: 20190825
